FAERS Safety Report 4737190-7 (Version None)
Quarter: 2005Q3

REPORT INFORMATION
  Report Type: 
  Country: None (occurrence: None)
  Receive Date: 20050808
  Receipt Date: 20050426
  Transmission Date: 20060218
  Serious: Yes (Hospitalization)
  Sender: FDA-Public Use
  Company Number: US-MERCK-0504USA04790

PATIENT
  Age: 61 Year
  Sex: Male
  Weight: 123 kg

DRUGS (7)
  1. VIOXX [Suspect]
     Indication: MONARTHRITIS
     Route: 048
     Dates: start: 20010423, end: 20040917
  2. CRESTOR [Concomitant]
     Indication: BLOOD CHOLESTEROL INCREASED
     Route: 048
     Dates: start: 20031201
  3. GLUCOVANCE [Concomitant]
     Indication: DIABETES MELLITUS
     Route: 048
     Dates: start: 20031007
  4. ACETAMINOPHEN AND HYDROCODONE BITARTRATE [Concomitant]
     Indication: PAIN
     Route: 048
     Dates: start: 20000104
  5. ACETAMINOPHEN AND HYDROCODONE BITARTRATE [Concomitant]
     Route: 048
     Dates: start: 20000104
  6. LOTREL [Concomitant]
     Indication: HYPERTENSION
     Route: 048
     Dates: start: 20000109
  7. PAROXETINE [Concomitant]
     Route: 048
     Dates: start: 20030925

REACTIONS (4)
  - BLOOD CHOLESTEROL INCREASED [None]
  - MYOCARDIAL INFARCTION [None]
  - NECK INJURY [None]
  - TENDON INJURY [None]
